FAERS Safety Report 5618823-X (Version None)
Quarter: 2008Q1

REPORT INFORMATION
  Report Type: 
  Country: None (occurrence: None)
  Receive Date: 20080207
  Receipt Date: 20080125
  Transmission Date: 20080703
  Serious: Yes (Death, Hospitalization, Other)
  Sender: FDA-Public Use
  Company Number: US-ELI_LILLY_AND_COMPANY-US200801005773

PATIENT
  Age: 58 Year
  Sex: Female

DRUGS (4)
  1. ALIMTA [Suspect]
     Indication: NON-SMALL CELL LUNG CANCER
     Dates: start: 20070917
  2. VITAMIN B-12 [Concomitant]
  3. FOLIC ACID [Concomitant]
     Dates: start: 20070904
  4. ZOMETA [Concomitant]
     Indication: METASTASES TO BONE
     Dates: start: 20070904

REACTIONS (6)
  - CONFUSIONAL STATE [None]
  - DEATH [None]
  - FATIGUE [None]
  - NEUTROPENIA [None]
  - SEPSIS [None]
  - WHITE BLOOD CELL COUNT DECREASED [None]
